FAERS Safety Report 9476268 (Version 2)
Quarter: 2013Q3

REPORT INFORMATION
  Report Type: Spontaneous
  Country: IT (occurrence: None)
  Receive Date: 20130812
  Receipt Date: 20130909
  Transmission Date: 20140515
  Serious: Yes (Other)
  Sender: FDA-Public Use
  Company Number: 2013037326

PATIENT
  Age: 60 Year
  Sex: Male

DRUGS (1)
  1. INTRAVENOUS IMMUNOGLOBULIN [Suspect]
     Indication: MILLER FISHER SYNDROME

REACTIONS (4)
  - Drug ineffective for unapproved indication [None]
  - Anti-GAD antibody positive [None]
  - Peripheral sensorimotor neuropathy [None]
  - Off label use [None]
